FAERS Safety Report 7740603-X (Version None)
Quarter: 2011Q3

REPORT INFORMATION
  Report Type: 
  Country: None (occurrence: None)
  Receive Date: 20110909
  Receipt Date: 20110905
  Transmission Date: 20111222
  Serious: Yes (Life-Threatening, Other)
  Sender: FDA-Public Use
  Company Number: JP-ELI_LILLY_AND_COMPANY-JP201109001155

PATIENT
  Age: 67 Year
  Sex: Female

DRUGS (2)
  1. DOBUTREX [Concomitant]
     Indication: CARDIAC FAILURE
     Dosage: UNK
     Dates: start: 20110801
  2. ADCIRCA [Suspect]
     Indication: PULMONARY HYPERTENSION
     Dosage: 10-40MG DAILY, BID
     Route: 048
     Dates: start: 20110801, end: 20110902

REACTIONS (4)
  - SHOCK [None]
  - ATRIAL FIBRILLATION [None]
  - CARDIAC FAILURE [None]
  - ORGANISING PNEUMONIA [None]
